FAERS Safety Report 19459500 (Version 1)
Quarter: 2021Q2

REPORT INFORMATION
  Report Type: Spontaneous
  Country: US (occurrence: US)
  Receive Date: 20210624
  Receipt Date: 20210624
  Transmission Date: 20210717
  Serious: Yes (Other)
  Sender: FDA-Public Use
  Company Number: US-TEVA-2021-US-1924669

PATIENT
  Age: 34 Year
  Sex: Female

DRUGS (12)
  1. ETOPOSIDE. [Suspect]
     Active Substance: ETOPOSIDE
     Indication: GESTATIONAL TROPHOBLASTIC TUMOUR
     Dosage: RECEIVED ON DAYS 1 AND 2, REPEATED EVERY WEEK FOR 3 WEEKS
     Route: 065
  2. ETOPOSIDE. [Suspect]
     Active Substance: ETOPOSIDE
     Dosage: RECEIVED ON DAY 8 POST SURGERY; EP/EMA REGIMEN
     Route: 042
  3. METHOTREXATE. [Suspect]
     Active Substance: METHOTREXATE
     Indication: GESTATIONAL TROPHOBLASTIC TUMOUR
     Dosage: RECEIVED ON DAY 9 POST SURGERY; EP/EM REGIMEN
     Route: 042
  4. APIXABAN [Concomitant]
     Active Substance: APIXABAN
     Indication: ANTICOAGULANT THERAPY
     Route: 065
  5. HEPARIN [Concomitant]
     Active Substance: HEPARIN SODIUM
     Indication: ANTICOAGULANT THERAPY
     Route: 065
  6. ACTINOMYCIN D [Suspect]
     Active Substance: DACTINOMYCIN
     Indication: GESTATIONAL TROPHOBLASTIC TUMOUR
     Dosage: RECEIVED ON DAY 8 POSY SURGERY; EP/EMA REGIMEN
     Route: 042
  7. OXACILLIN [Concomitant]
     Active Substance: OXACILLIN SODIUM
     Indication: PRODUCT USED FOR UNKNOWN INDICATION
     Route: 042
  8. ETOPOSIDE. [Suspect]
     Active Substance: ETOPOSIDE
     Dosage: RECEIVED ON DAY 1 POST SURGERY; EP/EMA REGIMEN
     Route: 042
  9. PEMBROLIZUMAB. [Suspect]
     Active Substance: PEMBROLIZUMAB
     Indication: GESTATIONAL TROPHOBLASTIC TUMOUR
     Dosage: STARTING WITH CYCLE 6
     Route: 050
  10. CISPLATIN. [Suspect]
     Active Substance: CISPLATIN
     Indication: GESTATIONAL TROPHOBLASTIC TUMOUR
     Dosage: RECEIVED ON DAYS 1 AND 2, REPEATED EVERY WEEK FOR 3 WEEKS
     Route: 065
  11. CISPLATIN. [Suspect]
     Active Substance: CISPLATIN
     Dosage: RECEIVED ON DAY 1 POST SURGERY; EP/EMA REGIMEN
     Route: 042
  12. CARBOPLATIN. [Concomitant]
     Active Substance: CARBOPLATIN
     Indication: GESTATIONAL TROPHOBLASTIC TUMOUR
     Dosage: RECEIVED WITH CYCLE 10
     Route: 065

REACTIONS (4)
  - Ototoxicity [Unknown]
  - Tinnitus [Unknown]
  - Autoimmune thyroiditis [Recovered/Resolved]
  - Thrombocytopenia [Unknown]
